FAERS Safety Report 4667189-0 (Version None)
Quarter: 2005Q2

REPORT INFORMATION
  Report Type: 
  Country: None (occurrence: None)
  Receive Date: 20050520
  Receipt Date: 20040730
  Transmission Date: 20051028
  Serious: Yes (Other)
  Sender: FDA-Public Use
  Company Number: PHEH2004US08287

PATIENT
  Age: 56 Year
  Sex: Female

DRUGS (4)
  1. ZOMETA [Suspect]
     Indication: MULTIPLE MYELOMA
     Dosage: 4 MG EVERY 4 WEEKS
     Route: 042
     Dates: start: 20020815, end: 20040701
  2. DECADRON [Concomitant]
     Indication: PROPHYLAXIS
     Dosage: 20 MG EVERY 3 WEEKS
     Route: 042
     Dates: start: 20011115, end: 20020601
  3. ADRIAMYCIN PFS [Concomitant]
     Indication: MULTIPLE MYELOMA
     Dosage: 64 MG INFUSION
     Route: 042
     Dates: start: 20011115, end: 20020204
  4. VINCRISTINE [Concomitant]
     Indication: MULTIPLE MYELOMA
     Dosage: 1.6 MG INFUSION
     Route: 042
     Dates: start: 20011115, end: 20020204

REACTIONS (2)
  - JAW DISORDER [None]
  - OSTEONECROSIS [None]
